FAERS Safety Report 6415243-5 (Version None)
Quarter: 2009Q4

REPORT INFORMATION
  Report Type: 
  Country: None (occurrence: None)
  Receive Date: 20091027
  Receipt Date: 20091016
  Transmission Date: 20100525
  Serious: Yes (Other)
  Sender: FDA-Public Use
  Company Number: ES-RANBAXY-2009RR-28731

PATIENT
  Age: 42 Year
  Sex: Male

DRUGS (1)
  1. FENOFIBRATE [Suspect]

REACTIONS (1)
  - RENAL IMPAIRMENT [None]
